FAERS Safety Report 5238585-8 (Version None)
Quarter: 2007Q1

REPORT INFORMATION
  Report Type: 
  Country: None (occurrence: None)
  Receive Date: 20070215
  Receipt Date: 20070207
  Transmission Date: 20070707
  Serious: Yes (Hospitalization)
  Sender: FDA-Public Use
  Company Number: HQWYE936407FEB07

PATIENT
  Sex: Male
  Weight: 99.88 kg

DRUGS (3)
  1. ADVIL COLD AND SINUS [Suspect]
     Indication: PYREXIA
     Dosage: DOSE UNKNOWN, 4-6 HOURS
     Route: 048
  2. ADVIL COLD AND SINUS [Suspect]
     Indication: PAIN
  3. ALTACE [Concomitant]
     Indication: BLOOD PRESSURE
     Dosage: UNKNOWN
     Route: 065

REACTIONS (2)
  - FALL [None]
  - LOSS OF CONSCIOUSNESS [None]
